FAERS Safety Report 5859984-7 (Version None)
Quarter: 2008Q3

REPORT INFORMATION
  Report Type: 
  Country: None (occurrence: None)
  Receive Date: 20080827
  Receipt Date: 20080813
  Transmission Date: 20090109
  Serious: Yes (Other)
  Sender: FDA-Public Use
  Company Number: US-ELI_LILLY_AND_COMPANY-US200808002557

PATIENT
  Age: 58 Year
  Sex: Male

DRUGS (3)
  1. HUMALOG [Suspect]
     Dosage: 15 U, UNK
     Dates: start: 20080101
  2. HUMULIN R [Suspect]
     Dosage: UNK, UNK
     Dates: start: 20010301, end: 20080101
  3. AVONEX [Concomitant]
     Dosage: UNK, WEEKLY (1/W)

REACTIONS (6)
  - FALL [None]
  - JOINT INJURY [None]
  - KNEE ARTHROPLASTY [None]
  - MOVEMENT DISORDER [None]
  - MULTIPLE SCLEROSIS [None]
  - MUSCULAR WEAKNESS [None]
